FAERS Safety Report 23839508 (Version 1)
Quarter: 2024Q2

REPORT INFORMATION
  Report Type: Spontaneous
  Country: US (occurrence: US)
  Receive Date: 20240510
  Receipt Date: 20240510
  Transmission Date: 20240716
  Serious: Yes (Hospitalization, Other)
  Sender: FDA-Public Use
  Company Number: US-APOTEX-2024AP005662

PATIENT
  Age: 42 Year
  Sex: Male

DRUGS (2)
  1. MYCOPHENOLATE SODIUM [Suspect]
     Active Substance: MYCOPHENOLATE SODIUM
     Indication: Immunosuppression
     Dosage: UNK
     Route: 065
  2. TACROLIMUS [Suspect]
     Active Substance: TACROLIMUS
     Indication: Immunosuppression
     Dosage: UNK
     Route: 065

REACTIONS (5)
  - Glomerulonephritis [Recovering/Resolving]
  - Acute kidney injury [Recovering/Resolving]
  - Post infection glomerulonephritis [Recovering/Resolving]
  - Pancytopenia [Unknown]
  - Cat scratch disease [Recovered/Resolved]
